FAERS Safety Report 8995029 (Version 1)
Quarter: 2012Q4

REPORT INFORMATION
  Report Type: Spontaneous
  Country: US (occurrence: None)
  Receive Date: 20121228
  Receipt Date: 20121228
  Transmission Date: 20130627
  Serious: Yes (Hospitalization)
  Sender: FDA-Public Use
  Company Number: None

PATIENT
  Sex: Female
  Weight: 80 kg

DRUGS (18)
  1. CARBOPLATIN [Suspect]
  2. CISPLATIN [Suspect]
  3. PACLITAXEL (TAXOL) [Suspect]
  4. NEULASTA [Suspect]
  5. CARVEDILOL [Concomitant]
  6. CIPRO [Concomitant]
  7. CITALOPRAM [Concomitant]
  8. DIGOXAN [Concomitant]
  9. DUCOSATE [Concomitant]
  10. INSULIN GLARGINE [Concomitant]
  11. LORTAB [Concomitant]
  12. METAMUCIL [Concomitant]
  13. NOVOLOG INSULIN ASPART [Concomitant]
  14. OMEPRAZOLE [Concomitant]
  15. PACKET RED BLOOD CELLS [Concomitant]
  16. SIMVASTATIN [Concomitant]
  17. SOLIFENACIN [Concomitant]
  18. XANAX [Concomitant]

REACTIONS (9)
  - Rectal haemorrhage [None]
  - Abdominal distension [None]
  - Abdominal pain [None]
  - Anaemia [None]
  - Renal disorder [None]
  - Urinary incontinence [None]
  - Faecal incontinence [None]
  - Radiation mucositis [None]
  - Mucosal inflammation [None]
